FAERS Safety Report 15762596 (Version 1)
Quarter: 2018Q4

REPORT INFORMATION
  Report Type: Spontaneous
  Country: US (occurrence: US)
  Receive Date: 20181226
  Receipt Date: 20181226
  Transmission Date: 20190205
  Serious: No
  Sender: FDA-Public Use
  Company Number: US-PFIZER INC-2018529598

PATIENT
  Age: 25 Year
  Sex: Male
  Weight: 78.2 kg

DRUGS (1)
  1. ADVIL COLD AND SINUS [Suspect]
     Active Substance: IBUPROFEN\PSEUDOEPHEDRINE HYDROCHLORIDE
     Indication: NASOPHARYNGITIS
     Dosage: NEVER TOOK MORE THAN TWO TABLETS BY MOUTH AT A TIME
     Route: 048
     Dates: start: 201812, end: 201812

REACTIONS (2)
  - Abnormal faeces [Not Recovered/Not Resolved]
  - Intentional product misuse [Unknown]

NARRATIVE: CASE EVENT DATE: 201812
